FAERS Safety Report 23793766 (Version 1)
Quarter: 2024Q2

REPORT INFORMATION
  Report Type: Spontaneous
  Country: US (occurrence: None)
  Receive Date: 20240426
  Receipt Date: 20240426
  Transmission Date: 20240715
  Serious: Yes (Hospitalization)
  Sender: FDA-Public Use
  Company Number: None

PATIENT
  Age: 74 Year
  Sex: Male
  Weight: 96.1 kg

DRUGS (2)
  1. IOHEXOL [Suspect]
     Active Substance: IOHEXOL
     Indication: Scan with contrast
     Dates: start: 20230303, end: 20230303
  2. CHLORTHALIDONE [Suspect]
     Active Substance: CHLORTHALIDONE
     Indication: Hypertension
     Dosage: 25 MG EVERY DAY PO?
     Route: 048
     Dates: start: 20230303, end: 20230305

REACTIONS (1)
  - Acute kidney injury [None]

NARRATIVE: CASE EVENT DATE: 20230305
